FAERS Safety Report 16093809 (Version 1)
Quarter: 2019Q1

REPORT INFORMATION
  Report Type: Spontaneous
  Country: US (occurrence: US)
  Receive Date: 20190320
  Receipt Date: 20190320
  Transmission Date: 20190418
  Serious: No
  Sender: FDA-Public Use
  Company Number: US-AUROBINDO-AUR-APL-2018-038578

PATIENT
  Age: 52 Year
  Sex: Male
  Weight: 93.88 kg

DRUGS (2)
  1. LAMOTRIGINE TABLETS 200 MG [Suspect]
     Active Substance: LAMOTRIGINE
     Indication: PRODUCT USED FOR UNKNOWN INDICATION
     Dosage: 100 MILLIGRAM IN THE EVENING
     Route: 048
  2. LAMOTRIGINE TABLETS 200 MG [Suspect]
     Active Substance: LAMOTRIGINE
     Dosage: 200 MILLIGRAM IN THE MORNING
     Route: 048

REACTIONS (1)
  - Medication error [Not Recovered/Not Resolved]
